FAERS Safety Report 19227741 (Version 1)
Quarter: 2021Q2

REPORT INFORMATION
  Report Type: Spontaneous
  Country: US (occurrence: US)
  Receive Date: 20210506
  Receipt Date: 20210506
  Transmission Date: 20210717
  Serious: No
  Sender: FDA-Public Use
  Company Number: US-MYLANLABS-2021M1024445

PATIENT
  Sex: Female
  Weight: 62 kg

DRUGS (3)
  1. LEVOTHYROXINE. [Concomitant]
     Active Substance: LEVOTHYROXINE
     Dosage: UNK
  2. ESTRADIOL TRANSDERMAL SYSTEM [Suspect]
     Active Substance: ESTRADIOL
     Indication: MENOPAUSAL SYMPTOMS
  3. ESTRADIOL TRANSDERMAL SYSTEM [Suspect]
     Active Substance: ESTRADIOL
     Indication: HORMONE REPLACEMENT THERAPY
     Dosage: UNK
     Route: 062
     Dates: start: 202007

REACTIONS (5)
  - Heart rate irregular [Not Recovered/Not Resolved]
  - Drug ineffective [Not Recovered/Not Resolved]
  - Suspected product quality issue [Unknown]
  - Hot flush [Not Recovered/Not Resolved]
  - Migraine [Not Recovered/Not Resolved]
